FAERS Safety Report 5573103-6 (Version None)
Quarter: 2007Q4

REPORT INFORMATION
  Report Type: 
  Country: None (occurrence: None)
  Receive Date: 20071220
  Receipt Date: 20071220
  Transmission Date: 20080405
  Serious: No
  Sender: FDA-Public Use
  Company Number: None

PATIENT
  Age: 30 Year
  Sex: Male
  Weight: 115.2136 kg

DRUGS (1)
  1. CHANTIX [Suspect]
     Indication: NICOTINE DEPENDENCE
     Dates: start: 20070725, end: 20071017

REACTIONS (2)
  - ALCOHOL USE [None]
  - IRRITABILITY [None]
